FAERS Safety Report 17307535 (Version 1)
Quarter: 2020Q1

REPORT INFORMATION
  Report Type: Spontaneous
  Country: US (occurrence: US)
  Receive Date: 20200122
  Receipt Date: 20200122
  Transmission Date: 20200409
  Serious: Yes (Hospitalization)
  Sender: FDA-Public Use
  Company Number: None

PATIENT
  Sex: Female
  Weight: 67.13 kg

DRUGS (10)
  1. NORCO 10-325MG [Concomitant]
  2. MORPHINE ER 15MG [Concomitant]
     Active Substance: MORPHINE
  3. MELOXICAM 15MG [Concomitant]
     Active Substance: MELOXICAM
  4. IBRANCE [Suspect]
     Active Substance: PALBOCICLIB
     Indication: BREAST CANCER FEMALE
     Route: 048
     Dates: start: 20190815, end: 20200122
  5. MAG-OXIDE 200MG [Concomitant]
  6. AMITRIPTYLINE 100MG [Concomitant]
  7. CITALOPRAM [Concomitant]
     Active Substance: CITALOPRAM HYDROBROMIDE
  8. BACLOFEN 10MG [Concomitant]
     Active Substance: BACLOFEN
  9. LETROZOLE 2.5MG [Concomitant]
     Active Substance: LETROZOLE
  10. CLONAZEPAM 0.25MG [Concomitant]

REACTIONS (2)
  - Wound [None]
  - Urinary tract infection [None]
